FAERS Safety Report 6851218-X (Version None)
Quarter: 2010Q3

REPORT INFORMATION
  Report Type: 
  Country: None (occurrence: None)
  Receive Date: 20100716
  Receipt Date: 20100713
  Transmission Date: 20110219
  Serious: Yes (Life-Threatening, Hospitalization)
  Sender: FDA-Public Use
  Company Number: PHHO2009AU15703

PATIENT
  Sex: Female

DRUGS (4)
  1. AFINITOR [Suspect]
     Indication: METASTATIC RENAL CELL CARCINOMA
     Dosage: 10MG
     Route: 048
     Dates: start: 20090311
  2. AFINITOR [Suspect]
     Dosage: 5 MG
     Route: 048
     Dates: end: 20091104
  3. PANADOL [Concomitant]
     Indication: BACK PAIN
  4. LASIX [Concomitant]
     Indication: OEDEMA

REACTIONS (7)
  - ANAEMIA [None]
  - GASTROINTESTINAL ANGIODYSPLASIA [None]
  - GASTROINTESTINAL HAEMORRHAGE [None]
  - PLEURAL EFFUSION [None]
  - RASH ERYTHEMATOUS [None]
  - RASH PRURITIC [None]
  - UROSEPSIS [None]
